FAERS Safety Report 7264064-2 (Version None)
Quarter: 2011Q1

REPORT INFORMATION
  Report Type: 
  Country: None (occurrence: None)
  Receive Date: 20110130
  Receipt Date: 20101230
  Transmission Date: 20110831
  Serious: No
  Sender: FDA-Public Use
  Company Number: US-ABBOTT-11P-163-0694724-00

PATIENT
  Sex: Female
  Weight: 73.548 kg

DRUGS (5)
  1. TRAMADOL HCL [Concomitant]
     Indication: RESTLESS LEGS SYNDROME
  2. HUMIRA [Suspect]
     Indication: PSORIASIS
     Dates: start: 20101119
  3. METOPROLOL [Concomitant]
     Indication: HYPERTENSION
     Dates: start: 20020101
  4. CELEXA [Concomitant]
     Indication: DEPRESSION
  5. IMIPRAMINE HCL [Concomitant]
     Indication: CHRONIC FATIGUE SYNDROME

REACTIONS (4)
  - COUGH [None]
  - DYSPNOEA [None]
  - PAIN [None]
  - MUSCULOSKELETAL CHEST PAIN [None]
